FAERS Safety Report 18100604 (Version 1)
Quarter: 2020Q3

REPORT INFORMATION
  Report Type: Spontaneous
  Country: DK (occurrence: DK)
  Receive Date: 20200731
  Receipt Date: 20200731
  Transmission Date: 20201103
  Serious: Yes (Hospitalization)
  Sender: FDA-Public Use
  Company Number: NVSC2020DK212621

PATIENT
  Age: 92 Year
  Sex: Male

DRUGS (8)
  1. LATANOPROST. [Concomitant]
     Active Substance: LATANOPROST
     Indication: GLAUCOMA
     Dosage: 2 DF, QD(STRENGTH: 50 MICROGRAM/ML)
     Route: 050
     Dates: start: 20180531
  2. BETOLVEX [CYANOCOBALAMIN] [Concomitant]
     Active Substance: CYANOCOBALAMIN
     Indication: VITAMIN B12 DEFICIENCY
     Dosage: 1 MG, QD(STRENGTH: 1 MG)
     Route: 048
     Dates: start: 20171113
  3. SIMVASTATIN. [Concomitant]
     Active Substance: SIMVASTATIN
     Indication: CARDIOVASCULAR EVENT PROPHYLAXIS
     Dosage: 40 MG, QD(STRENGTH: 40 MG)
     Route: 048
     Dates: start: 20180801
  4. PANTOPRAZOLE [Concomitant]
     Active Substance: PANTOPRAZOLE
     Indication: GASTRIC ULCER
     Dosage: 20 MG, QD(STRENGTH: 20 MG)
     Route: 048
     Dates: start: 20190823
  5. DONEPEZIL ^SANDOZ^ [Suspect]
     Active Substance: DONEPEZIL HYDROCHLORIDE
     Indication: DEMENTIA ALZHEIMER^S TYPE
     Dosage: 5 MG, QD
     Route: 048
     Dates: start: 20200625, end: 20200707
  6. METOPROLOL. [Concomitant]
     Active Substance: METOPROLOL
     Indication: ARRHYTHMIA
     Dosage: 25 MG, QD(STRENGTH: 25 MG)
     Route: 048
     Dates: start: 20190822
  7. ELIQUIS [Concomitant]
     Active Substance: APIXABAN
     Indication: THROMBOSIS PROPHYLAXIS
     Dosage: 5 MG, QD(STRENGTH: 2.5 MG)
     Route: 048
     Dates: start: 20190819
  8. ELTROXIN [Concomitant]
     Active Substance: LEVOTHYROXINE
     Indication: MYXOEDEMA
     Dosage: UNK(DOSE: 3 TABL. 3 TIMES A WEEK, 2 TABL. 4 TIMES A WEEK. STRENGTH: 50 MICROGRAM)
     Route: 048
     Dates: start: 20190824

REACTIONS (3)
  - Weight decreased [Unknown]
  - Decreased appetite [Unknown]
  - Fall [Unknown]

NARRATIVE: CASE EVENT DATE: 202006
